APPROVED DRUG PRODUCT: ICATIBANT ACETATE
Active Ingredient: ICATIBANT ACETATE
Strength: EQ 30MG BASE/3ML (EQ 10MG BASE/ML)
Dosage Form/Route: INJECTABLE;SUBCUTANEOUS
Application: A211501 | Product #001 | TE Code: AP
Applicant: WILSHIRE PHARMACEUTICALS INC
Approved: Sep 1, 2020 | RLD: No | RS: No | Type: RX